FAERS Safety Report 7067202-X (Version None)
Quarter: 2010Q4

REPORT INFORMATION
  Report Type: 
  Country: None (occurrence: None)
  Receive Date: 20101028
  Receipt Date: 20101020
  Transmission Date: 20110411
  Serious: No
  Sender: FDA-Public Use
  Company Number: 2008BI011341

PATIENT
  Sex: Female

DRUGS (1)
  1. TYSABRI [Suspect]
     Indication: MULTIPLE SCLEROSIS
     Route: 042
     Dates: start: 20080424

REACTIONS (5)
  - DIARRHOEA [None]
  - FATIGUE [None]
  - MENTAL STATUS CHANGES [None]
  - MUSCLE SPASMS [None]
  - TEMPERATURE INTOLERANCE [None]
